FAERS Safety Report 9738348 (Version 1)
Quarter: 2013Q4

REPORT INFORMATION
  Report Type: Spontaneous
  Country: US (occurrence: US)
  Receive Date: 20131208
  Receipt Date: 20131208
  Transmission Date: 20140711
  Serious: No
  Sender: FDA-Public Use
  Company Number: -SAAVPROD-RENA-1001873

PATIENT
  Sex: Male

DRUGS (3)
  1. SEVELAMER CARBONATE [Suspect]
     Indication: HYPERPHOSPHATAEMIA
     Dosage: 1 DF, ONE TABLET WITH EACH MEAL
     Route: 065
  2. SEVELAMER CARBONATE [Suspect]
     Indication: HYPERPHOSPHATAEMIA
     Dosage: 3 DF, THREE TABLETS WITH EACH MEAL
     Route: 065
  3. CALCIUM CARBONATE [Concomitant]
     Indication: ACIDOSIS
     Dosage: UNK
     Route: 065

REACTIONS (1)
  - Hyperphosphataemia [Unknown]
